FAERS Safety Report 14626999 (Version 4)
Quarter: 2018Q3

REPORT INFORMATION
  Report Type: Spontaneous
  Country: US (occurrence: US)
  Receive Date: 20180312
  Receipt Date: 20180808
  Transmission Date: 20181010
  Serious: No
  Sender: FDA-Public Use
  Company Number: US-ASTRAZENECA-2018SE27455

PATIENT
  Sex: Female

DRUGS (1)
  1. BYDUREON [Suspect]
     Active Substance: EXENATIDE
     Indication: TYPE 2 DIABETES MELLITUS
     Route: 067

REACTIONS (5)
  - Device malfunction [Unknown]
  - Injection site mass [Unknown]
  - Drug dose omission [Unknown]
  - Needle issue [Unknown]
  - Injection site bruising [Unknown]
